FAERS Safety Report 5779804-9 (Version None)
Quarter: 2008Q2

REPORT INFORMATION
  Report Type: 
  Country: None (occurrence: None)
  Receive Date: 20080618
  Receipt Date: 20080602
  Transmission Date: 20081010
  Serious: Yes (Other)
  Sender: FDA-Public Use
  Company Number: MK-6030542

PATIENT
  Age: 38 Year
  Sex: Male

DRUGS (11)
  1. DOXOZOSIN [Suspect]
     Indication: DRUG USE FOR UNKNOWN INDICATION
  2. ASPIRIN [Suspect]
  3. PERINDOPRIL ERBUMINE [Suspect]
  4. ATENOLOL [Concomitant]
  5. PYRIDOXINE (PYRIDOXINE) [Concomitant]
     Indication: DRUG USE FOR UNKNOWN INDICATION
  6. ATORVASTATIN CALCIUM [Suspect]
     Indication: HYPERLIPIDAEMIA
  7. CELLCEPT [Suspect]
     Indication: RENAL TRANSPLANT
     Dosage: ORAL
     Route: 048
     Dates: start: 20020615, end: 20060315
  8. ISONIAZID [Suspect]
     Indication: DRUG USE FOR UNKNOWN INDICATION
  9. LAMIVUDINE [Suspect]
     Indication: HEPATITIS B
  10. NEORAL [Suspect]
     Indication: RENAL TRANSPLANT
     Dates: start: 20000101
  11. CYCLOSPORINE [Suspect]
     Indication: DRUG USE FOR UNKNOWN INDICATION

REACTIONS (1)
  - SPERMATOZOA PROGRESSIVE MOTILITY DECREASED [None]
